FAERS Safety Report 10386608 (Version 1)
Quarter: 2014Q1

REPORT INFORMATION
  Report Type: Spontaneous
  Country: US (occurrence: None)
  Receive Date: 20140306
  Receipt Date: 20140306
  Transmission Date: 20141002
  Serious: Yes (Other)
  Sender: FDA-Public Use
  Company Number: 163-21880-13121485

PATIENT
  Age: 55 Year
  Sex: Female

DRUGS (4)
  1. REVLIMID (LENALIDOMIDE) (25 MILLIGRAM, CAPSULES) [Suspect]
     Indication: PLASMA CELL MYELOMA
     Dosage: 25 MG, 21 IN 21 D, PO
     Route: 048
     Dates: start: 20120810
  2. DEXAMETHASONE (DEXAMETHASONE) [Suspect]
     Indication: PLASMA CELL MYELOMA
     Route: 048
  3. LANTUS (INSULIN GLARGINE) [Suspect]
     Indication: DIABETES MELLITUS
     Dosage: 100 UNITS, NOT PROVIDED, SC
     Route: 058
  4. NOVOLOG (INSULIN ASPART) [Suspect]
     Indication: DIABETES MELLITUS
     Dosage: 100 UNITS, NOT PROVIDED, SC

REACTIONS (2)
  - Neuralgia [None]
  - Back pain [None]
